FAERS Safety Report 6218056-2 (Version None)
Quarter: 2009Q2

REPORT INFORMATION
  Report Type: 
  Country: None (occurrence: None)
  Receive Date: 20090608
  Receipt Date: 20090528
  Transmission Date: 20091009
  Serious: Yes (Other)
  Sender: FDA-Public Use
  Company Number: FR-CELGENEUS-056-20484-09060106

PATIENT
  Sex: Female
  Weight: 75 kg

DRUGS (4)
  1. INNOHEP [Suspect]
     Route: 058
  2. INNOHEP [Suspect]
     Route: 058
  3. INNOHEP [Suspect]
     Route: 058
  4. VITAMIN K ANTAGONISTS [Concomitant]
     Indication: DRUG USE FOR UNKNOWN INDICATION
     Route: 065

REACTIONS (3)
  - DRUG EXPOSURE DURING PREGNANCY [None]
  - METRORRHAGIA [None]
  - PLACENTA PRAEVIA [None]
